FAERS Safety Report 15799576 (Version 1)
Quarter: 2019Q1

REPORT INFORMATION
  Report Type: Spontaneous
  Country: US (occurrence: US)
  Receive Date: 20190108
  Receipt Date: 20190108
  Transmission Date: 20190417
  Serious: Yes (Other)
  Sender: FDA-Public Use
  Company Number: US-AMGEN-USASP2019001445

PATIENT
  Sex: Female
  Weight: 51.7 kg

DRUGS (9)
  1. CELLCEPT [Concomitant]
     Active Substance: MYCOPHENOLATE MOFETIL\MYCOPHENOLATE MOFETIL HYDROCHLORIDE
     Dosage: UNK
  2. LEVOTHROID [Concomitant]
     Active Substance: LEVOTHYROXINE SODIUM
     Dosage: UNK
  3. PROCRIT [Suspect]
     Active Substance: ERYTHROPOIETIN
     Dosage: 5000 UNIT, QWK (10,000 UNITS/ML)
     Route: 065
  4. GENGRAF [Concomitant]
     Active Substance: CYCLOSPORINE
     Dosage: UNK
  5. ACYCLOVIR. [Concomitant]
     Active Substance: ACYCLOVIR
     Dosage: UNK
  6. EPOGEN [Suspect]
     Active Substance: ERYTHROPOIETIN
     Indication: PRODUCT USED FOR UNKNOWN INDICATION
     Dosage: UNK
     Route: 065
  7. PROCRIT [Suspect]
     Active Substance: ERYTHROPOIETIN
     Dosage: 20000 UNIT, UNK (2 ML OF 10,000 UNITS/ML)
     Route: 065
     Dates: start: 2018
  8. BENADRYL [Suspect]
     Active Substance: DIPHENHYDRAMINE HYDROCHLORIDE
     Indication: PRODUCT USED FOR UNKNOWN INDICATION
     Route: 048
  9. PROCRIT [Suspect]
     Active Substance: ERYTHROPOIETIN
     Indication: PRODUCT USED FOR UNKNOWN INDICATION
     Dosage: UNK UNK, QMO
     Route: 065
     Dates: start: 2015

REACTIONS (15)
  - Paranasal sinus discomfort [Not Recovered/Not Resolved]
  - Vomiting [Unknown]
  - Tremor [Unknown]
  - Bone pain [Unknown]
  - Compression fracture [Unknown]
  - Head discomfort [Unknown]
  - Influenza [Unknown]
  - Hangover [Not Recovered/Not Resolved]
  - Nausea [Unknown]
  - Haematocrit decreased [Unknown]
  - Sinus headache [Not Recovered/Not Resolved]
  - Somnolence [Not Recovered/Not Resolved]
  - Osteoarthritis [Not Recovered/Not Resolved]
  - Underdose [Unknown]
  - Chills [Unknown]

NARRATIVE: CASE EVENT DATE: 2018
